FAERS Safety Report 12073289 (Version 2)
Quarter: 2016Q1

REPORT INFORMATION
  Report Type: Report from Study
  Country: CA (occurrence: CA)
  Receive Date: 20160212
  Receipt Date: 20160222
  Transmission Date: 20160526
  Serious: Yes (Other)
  Sender: FDA-Public Use
  Company Number: CA-JNJFOC-20160205297

PATIENT
  Sex: Male
  Weight: 96 kg

DRUGS (1)
  1. REMICADE [Suspect]
     Active Substance: INFLIXIMAB
     Indication: CROHN^S DISEASE
     Route: 042
     Dates: start: 2006

REACTIONS (6)
  - Epstein-Barr virus infection [Unknown]
  - Inappropriate schedule of drug administration [Unknown]
  - Viral infection [Unknown]
  - Proctitis [Unknown]
  - Off label use [Unknown]
  - Immunosuppressant drug level decreased [Unknown]

NARRATIVE: CASE EVENT DATE: 2006
